FAERS Safety Report 25768644 (Version 1)
Quarter: 2025Q3

REPORT INFORMATION
  Report Type: Report from Study
  Country: US (occurrence: US)
  Receive Date: 20250905
  Receipt Date: 20250905
  Transmission Date: 20251021
  Serious: Yes (Other)
  Sender: ABBVIE
  Company Number: US-ABBVIE-5772157

PATIENT
  Age: 67 Year
  Sex: Female

DRUGS (1)
  1. RINVOQ [Suspect]
     Active Substance: UPADACITINIB
     Indication: Rheumatoid arthritis
     Route: 048
     Dates: start: 20191224

REACTIONS (9)
  - Breast cancer female [Unknown]
  - Pain [Not Recovered/Not Resolved]
  - Spinal disorder [Unknown]
  - Joint swelling [Not Recovered/Not Resolved]
  - Illness [Recovering/Resolving]
  - Bone pain [Recovering/Resolving]
  - Neck pain [Recovering/Resolving]
  - Gait disturbance [Recovering/Resolving]
  - Arthralgia [Recovering/Resolving]

NARRATIVE: CASE EVENT DATE: 20250902
